FAERS Safety Report 19846599 (Version 1)
Quarter: 2021Q3

REPORT INFORMATION
  Report Type: Spontaneous
  Country: US (occurrence: US)
  Receive Date: 20210915
  Receipt Date: 20210915
  Transmission Date: 20211014
  Serious: Yes (Hospitalization)
  Sender: FDA-Public Use
  Company Number: None

PATIENT
  Sex: Male

DRUGS (1)
  1. PROCRIT [Suspect]
     Active Substance: ERYTHROPOIETIN
     Indication: ACUTE MYELOID LEUKAEMIA
     Dosage: ?          OTHER STRENGTH:40,000U/ML;OTHER DOSE:40,000 UNITS;?
     Route: 058
     Dates: start: 202107

REACTIONS (1)
  - Pancytopenia [None]
